FAERS Safety Report 18120867 (Version 1)
Quarter: 2020Q3

REPORT INFORMATION
  Report Type: Spontaneous
  Country: RO (occurrence: RO)
  Receive Date: 20200806
  Receipt Date: 20200806
  Transmission Date: 20201103
  Serious: Yes (Death, Other)
  Sender: FDA-Public Use
  Company Number: RO-ROCHE-2653208

PATIENT
  Age: 66 Year
  Sex: Female

DRUGS (1)
  1. ALECENSA [Suspect]
     Active Substance: ALECTINIB HYDROCHLORIDE
     Indication: LUNG ADENOCARCINOMA
     Dosage: 4?0?4,  TOTAL OF 3 FULL CYCLES
     Route: 065
     Dates: start: 201910

REACTIONS (4)
  - General physical condition abnormal [Unknown]
  - Death [Fatal]
  - Cachexia [Unknown]
  - Dysphagia [Unknown]

NARRATIVE: CASE EVENT DATE: 202003
